FAERS Safety Report 9862188 (Version 5)
Quarter: 2015Q4

REPORT INFORMATION
  Report Type: Spontaneous
  Country: US (occurrence: US)
  Receive Date: 20140203
  Receipt Date: 20151112
  Transmission Date: 20160305
  Serious: Yes (Hospitalization, Other)
  Sender: FDA-Public Use
  Company Number: US-009507513-1401USA011985

PATIENT
  Sex: Female
  Weight: 45.8 kg

DRUGS (3)
  1. FOSAMAX [Suspect]
     Active Substance: ALENDRONATE SODIUM
     Indication: OSTEOPOROSIS
     Dosage: 70 MG, QW
     Route: 048
     Dates: start: 1995, end: 201012
  2. FOSAMAX [Suspect]
     Active Substance: ALENDRONATE SODIUM
     Dosage: UNK
     Route: 048
     Dates: start: 199509, end: 200803
  3. ALENDRONATE SODIUM. [Suspect]
     Active Substance: ALENDRONATE SODIUM
     Indication: OSTEOPOROSIS
     Dosage: 70 MG, QW
     Route: 048
     Dates: start: 2008, end: 201012

REACTIONS (21)
  - Intramedullary rod insertion [Unknown]
  - Hypercholesterolaemia [Not Recovered/Not Resolved]
  - Urinary tract infection [Unknown]
  - Prerenal failure [Unknown]
  - Electrocardiogram PR shortened [Unknown]
  - Asthma [Unknown]
  - Stress fracture [Unknown]
  - Gastrooesophageal reflux disease [Unknown]
  - Femur fracture [Unknown]
  - Tooth disorder [Unknown]
  - Appendicectomy [Unknown]
  - Vitamin D deficiency [Unknown]
  - Atrioventricular conduction time shortened [Unknown]
  - Scoliosis [Unknown]
  - Tonsillectomy [Unknown]
  - Hiatus hernia [Unknown]
  - Anxiety [Unknown]
  - Hypothyroidism [Not Recovered/Not Resolved]
  - Hypothyroidism [Not Recovered/Not Resolved]
  - Hypertension [Unknown]
  - Hypoglycaemia [Unknown]

NARRATIVE: CASE EVENT DATE: 2000
